FAERS Safety Report 22029612 (Version 2)
Quarter: 2023Q1

REPORT INFORMATION
  Report Type: Report from Study
  Country: GB (occurrence: GB)
  Receive Date: 20230223
  Receipt Date: 20230228
  Transmission Date: 20230417
  Serious: Yes (Other)
  Sender: FDA-Public Use
  Company Number: GB-BAXTER-2023BAX013350

PATIENT
  Age: 54 Year
  Sex: Female

DRUGS (19)
  1. WATER FOR INJECTION [Suspect]
     Active Substance: WATER
     Indication: Parenteral nutrition
     Dosage: 6 DAYS PER WEEK FOR 12 HOURS
     Route: 042
     Dates: start: 20230208
  2. WATER FOR INJECTION [Suspect]
     Active Substance: WATER
     Dosage: 1 DAYS FOR 12 HOURS AND DAILY INFUSION DURATION: 12 HOURS
     Route: 042
     Dates: start: 20230219, end: 20230220
  3. CERNEVIT [Suspect]
     Active Substance: VITAMINS
     Indication: Parenteral nutrition
     Dosage: 6 DAYS PER WEEK FOR 12 HOURS
     Route: 042
     Dates: start: 20230208
  4. CERNEVIT [Suspect]
     Active Substance: VITAMINS
     Dosage: 1 DAYS FOR 12 HOURS AND DAILY INFUSION DURATION: 12 HOURS
     Route: 042
     Dates: start: 20230219, end: 20230220
  5. DEXTROSE [Suspect]
     Active Substance: DEXTROSE
     Indication: Parenteral nutrition
     Dosage: 6 DAYS PER WEEK FOR 12 HOURS
     Route: 042
     Dates: start: 20230208
  6. DEXTROSE [Suspect]
     Active Substance: DEXTROSE
     Dosage: 1 DAYS FOR 12 HOURS AND DAILY INFUSION DURATION: 12 HOURS
     Route: 042
     Dates: start: 20230219, end: 20230220
  7. MAGNESIUM SULFATE [Suspect]
     Active Substance: MAGNESIUM SULFATE
     Indication: Parenteral nutrition
     Dosage: 6 DAYS PER WEEK FOR 12 HOURS (BAG)
     Route: 042
     Dates: start: 20230208
  8. MAGNESIUM SULFATE [Suspect]
     Active Substance: MAGNESIUM SULFATE
     Dosage: 1 DAYS FOR 12 HOURS AND DAILY INFUSION DURATION: 12 HOURS
     Route: 042
     Dates: start: 20230219, end: 20230220
  9. SODIUM CHLORIDE [Suspect]
     Active Substance: SODIUM CHLORIDE
     Indication: Parenteral nutrition
     Dosage: 6 DAYS PER WEEK FOR 12 HOURS
     Route: 042
     Dates: start: 20230208
  10. SODIUM CHLORIDE [Suspect]
     Active Substance: SODIUM CHLORIDE
     Dosage: 1 DAYS FOR 12 HOURS AND DAILY INFUSION DURATION: 12 HOURS
     Route: 042
     Dates: start: 20230219, end: 20230220
  11. WATER [Suspect]
     Active Substance: WATER
     Indication: Parenteral nutrition
     Dosage: 6 DAYS PER WEEK FOR 12 HOURS
     Route: 042
     Dates: start: 20230208
  12. WATER [Suspect]
     Active Substance: WATER
     Dosage: 1 DAYS FOR 12 HOURS AND DAILY INFUSION DURATION: 12 HOURS
     Route: 042
     Dates: start: 20230219, end: 20230220
  13. CALCIUM CHLORIDE [Suspect]
     Active Substance: CALCIUM CHLORIDE
     Indication: Parenteral nutrition
     Dosage: 6 DAYS PER WEEK FOR 12 HOURS
     Route: 042
     Dates: start: 20230208
  14. CALCIUM CHLORIDE [Suspect]
     Active Substance: CALCIUM CHLORIDE
     Dosage: 1 DAYS FOR 12 HOURS AND DAILY INFUSION DURATION: 12 HOURS
     Route: 042
     Dates: start: 20230219, end: 20230220
  15. AMINO ACIDS, SOURCE UNSPECIFIED [Suspect]
     Active Substance: AMINO ACIDS, SOURCE UNSPECIFIED
     Indication: Parenteral nutrition
     Dosage: 6 DAYS PER WEEK FOR 12 HOURS (25)
     Route: 042
     Dates: start: 20230208
  16. AMINO ACIDS, SOURCE UNSPECIFIED [Suspect]
     Active Substance: AMINO ACIDS, SOURCE UNSPECIFIED
     Dosage: 1 DAYS FOR 12 HOURS AND DAILY INFUSION DURATION: 12 HOURS
     Route: 042
     Dates: start: 20230219, end: 20230220
  17. ELECTROLYTES NOS\MINERALS [Suspect]
     Active Substance: ELECTROLYTES NOS\MINERALS
     Indication: Parenteral nutrition
     Dosage: 6 DAYS PER WEEK FOR 12 HOURS
     Route: 042
     Dates: start: 20230208
  18. ELECTROLYTES NOS\MINERALS [Suspect]
     Active Substance: ELECTROLYTES NOS\MINERALS
     Dosage: 1 DAYS FOR 12 HOURS AND DAILY INFUSION DURATION: 12 HOURS
     Route: 042
     Dates: start: 20230219, end: 20230220
  19. UNSPECIFIED INGREDIENT [Suspect]
     Active Substance: UNSPECIFIED INGREDIENT
     Dosage: UNK
     Route: 065

REACTIONS (7)
  - Chest pain [Not Recovered/Not Resolved]
  - Fatigue [Not Recovered/Not Resolved]
  - Chills [Unknown]
  - Nausea [Unknown]
  - Malaise [Unknown]
  - Headache [Unknown]
  - Chest discomfort [Unknown]

NARRATIVE: CASE EVENT DATE: 20230213
